FAERS Safety Report 9808482 (Version 2)
Quarter: 2015Q3

REPORT INFORMATION
  Report Type: Spontaneous
  Country: US (occurrence: US)
  Receive Date: 20140110
  Receipt Date: 20150731
  Transmission Date: 20151125
  Serious: Yes (Hospitalization)
  Sender: FDA-Public Use
  Company Number: US-GILEAD-2010-0030545

PATIENT
  Sex: Male

DRUGS (3)
  1. NSAID [Concomitant]
     Active Substance: UNSPECIFIED INGREDIENT
  2. IRINOTECAN [Concomitant]
     Active Substance: IRINOTECAN
  3. VIREAD [Suspect]
     Active Substance: TENOFOVIR DISOPROXIL FUMARATE
     Indication: HIV INFECTION

REACTIONS (1)
  - Acute kidney injury [Unknown]
